FAERS Safety Report 10061060 (Version 1)
Quarter: 2014Q2

REPORT INFORMATION
  Report Type: Report from Study
  Country: US (occurrence: US)
  Receive Date: 20140405
  Receipt Date: 20140405
  Transmission Date: 20141212
  Serious: Yes (Hospitalization, Other)
  Sender: FDA-Public Use
  Company Number: US-TEVA-473296USA

PATIENT
  Age: 7 Month
  Sex: Male
  Weight: 7.62 kg

DRUGS (18)
  1. LESTAURTINIB [Suspect]
     Dates: start: 20131210
  2. CYCLOPHOSPHAMIDE [Suspect]
     Dates: start: 20131210
  3. CYTARABINE [Suspect]
     Route: 037
     Dates: start: 20131210
  4. DAUNORUBICIN [Suspect]
     Dates: start: 20131210
  5. DEXAMETHASONE [Suspect]
     Dates: start: 20131210
  6. HYDROCORTISONE [Suspect]
     Route: 037
     Dates: start: 20131210
  7. METHOTREXATE [Suspect]
     Route: 037
     Dates: start: 20131210
  8. PEG-L-ASPARAGINASE [Suspect]
     Dates: start: 20131210
  9. VINCRISTINE [Suspect]
     Dates: start: 20131210
  10. CEFTRIAXONE [Suspect]
  11. GENTAMICIN [Suspect]
  12. ZOSYN [Suspect]
  13. LANSOPRAZOLE [Concomitant]
  14. LORAZEPAM [Concomitant]
  15. MORPHINE [Concomitant]
  16. ONDANSETRON [Concomitant]
  17. RANITIDINE [Concomitant]
  18. SIMETHICONE [Concomitant]

REACTIONS (3)
  - Dermatitis diaper [Recovered/Resolved]
  - Klebsiella infection [Recovered/Resolved]
  - Clostridium difficile colitis [Recovered/Resolved]
